FAERS Safety Report 5471211-1 (Version None)
Quarter: 2007Q3

REPORT INFORMATION
  Report Type: 
  Country: None (occurrence: None)
  Receive Date: 20070928
  Receipt Date: 20070730
  Transmission Date: 20080115
  Serious: No
  Sender: FDA-Public Use
  Company Number: A0666894A

PATIENT
  Age: 68 Year
  Sex: Female

DRUGS (3)
  1. FLOVENT [Suspect]
     Indication: ASTHMA
     Dosage: 2PUFF TWICE PER DAY
     Route: 055
  2. DIABETES MEDICATION [Concomitant]
  3. LIPITOR [Concomitant]

REACTIONS (1)
  - PHARYNGOLARYNGEAL PAIN [None]
